FAERS Safety Report 12108980 (Version 1)
Quarter: 2016Q1

REPORT INFORMATION
  Report Type: Spontaneous
  Country: US (occurrence: None)
  Receive Date: 20160223
  Receipt Date: 20160223
  Transmission Date: 20160526
  Serious: Yes (Other)
  Sender: FDA-Public Use
  Company Number: None

PATIENT
  Age: 43 Year
  Sex: Male
  Weight: 155 kg

DRUGS (17)
  1. FERROUS GLUCONATE [Concomitant]
     Active Substance: FERROUS GLUCONATE
  2. ODANSETRON (ZOFRAN) [Concomitant]
  3. ONDANSETRON (DISINTEGRATING) (ZOFRAN ODT) [Concomitant]
  4. BACTROBAN [Concomitant]
     Active Substance: MUPIROCIN\MUPIROCIN CALCIUM
  5. SENNA-DOCUSATE (SENOKOT-S) [Concomitant]
  6. GLUCOSE [Concomitant]
     Active Substance: DEXTROSE
  7. LACTOBACILLUS (FLORAJEN 3) [Concomitant]
  8. TYLENOL [Concomitant]
     Active Substance: ACETAMINOPHEN
  9. DAPTOMYCIN. [Suspect]
     Active Substance: DAPTOMYCIN
     Indication: CELLULITIS
     Route: 042
     Dates: start: 20160215, end: 20160221
  10. AMITRIPTYLINE (ELAVIL) [Concomitant]
  11. GABAPENTIN (NEURONTIN) [Concomitant]
  12. CHLORHEXIDINE GLUCONATE. [Concomitant]
     Active Substance: CHLORHEXIDINE GLUCONATE
  13. CUBICIN [Concomitant]
     Active Substance: DAPTOMYCIN
  14. DEXTROSE. [Concomitant]
     Active Substance: DEXTROSE
  15. INSULIN DETEMIR (LEVEMIR) [Concomitant]
  16. PANTOPRAZOLE EC (PRTONIX) [Concomitant]
  17. INSULIN LISPRO (HUMALOG) [Concomitant]

REACTIONS (1)
  - Vision blurred [None]

NARRATIVE: CASE EVENT DATE: 20160220
